FAERS Safety Report 18272794 (Version 1)
Quarter: 2020Q3

REPORT INFORMATION
  Report Type: Spontaneous
  Country: DK (occurrence: DK)
  Receive Date: 20200916
  Receipt Date: 20200916
  Transmission Date: 20201103
  Serious: Yes (Other)
  Sender: FDA-Public Use
  Company Number: DK-MYLANLABS-2020M1078144

PATIENT
  Age: 54 Year
  Sex: Female

DRUGS (4)
  1. LAMOTRIGINE. [Suspect]
     Active Substance: LAMOTRIGINE
     Indication: TRIGEMINAL NEURALGIA
     Dosage: 100 MILLIGRAM, QD (STRENGTH: 100 MG ),PAUSED FROM 23NOV2016 TO 1DEC2016
     Route: 048
     Dates: start: 20120704, end: 20190320
  2. LAMOTRIGINE. [Suspect]
     Active Substance: LAMOTRIGINE
     Indication: TRIGEMINAL NEURALGIA
     Dosage: 200 MILLIGRAM, QD (STRENGTH: 200 MG) PAUSED FROM 23NOV2016 TO 1DEC2016
     Route: 048
     Dates: start: 20120704, end: 20190320
  3. NITROFURANTOIN. [Concomitant]
     Active Substance: NITROFURANTOIN
     Indication: URINARY TRACT INFECTION
     Dosage: STRENGTH: UNKNOWN DOSEAGE: UNKNOWN
     Route: 048
     Dates: end: 201609
  4. ZOLOFT [Concomitant]
     Active Substance: SERTRALINE HYDROCHLORIDE
     Indication: DEPRESSION
     Dosage: STRENGTH: UNKNOWN (STARTDATE UNKNOWN, BUT AT LEAST SINCE 2012)
     Route: 048

REACTIONS (1)
  - Organising pneumonia [Recovered/Resolved]

NARRATIVE: CASE EVENT DATE: 201609
